FAERS Safety Report 24972177 (Version 1)
Quarter: 2025Q1

REPORT INFORMATION
  Report Type: Spontaneous
  Country: US (occurrence: US)
  Receive Date: 20250214
  Receipt Date: 20250214
  Transmission Date: 20250408
  Serious: No
  Sender: MERCK SHARP & DOHME LLC
  Company Number: US-PFIZER INC-202500020059

PATIENT
  Age: 43 Year
  Sex: Female

DRUGS (3)
  1. TUCATINIB [Suspect]
     Active Substance: TUCATINIB
     Dosage: DOSE DESCRIPTION : 300 MG, 2X/DAY?DAILY DOSE : 600 MILLIGRAM
     Route: 048
  2. CAPECITABINE [Suspect]
     Active Substance: CAPECITABINE
  3. KLONOPIN [Concomitant]
     Active Substance: CLONAZEPAM

REACTIONS (2)
  - Off label use [Unknown]
  - Product use issue [Unknown]
